FAERS Safety Report 13077134 (Version 1)
Quarter: 2016Q4

REPORT INFORMATION
  Report Type: Spontaneous
  Country: IE (occurrence: IE)
  Receive Date: 20161230
  Receipt Date: 20161230
  Transmission Date: 20170207
  Serious: Yes (Other)
  Sender: FDA-Public Use
  Company Number: IE-ASTRAZENECA-2016SF36574

PATIENT
  Age: 50 Year
  Sex: Male

DRUGS (1)
  1. CRESTOR [Suspect]
     Active Substance: ROSUVASTATIN CALCIUM
     Indication: HYPERCHOLESTEROLAEMIA
     Dosage: 10.0MG UNKNOWN
     Route: 048
     Dates: start: 20110301, end: 20161114

REACTIONS (2)
  - Pain in extremity [Not Recovered/Not Resolved]
  - Tenosynovitis [Not Recovered/Not Resolved]

NARRATIVE: CASE EVENT DATE: 20161114
